FAERS Safety Report 9364543 (Version 10)
Quarter: 2017Q3

REPORT INFORMATION
  Report Type: Spontaneous
  Country: JP (occurrence: JP)
  Receive Date: 20130624
  Receipt Date: 20170905
  Transmission Date: 20171128
  Serious: Yes (Life-Threatening, Other)
  Sender: FDA-Public Use
  Company Number: JP-OTSUKA-JP-2013-12243

PATIENT
  Age: 8 Month
  Sex: Female
  Weight: 7.9 kg

DRUGS (16)
  1. BUSULFEX [Suspect]
     Active Substance: BUSULFAN
     Indication: CORD BLOOD TRANSPLANT THERAPY
     Dosage: 4.5 MG, QD
     Route: 041
     Dates: start: 20120227, end: 20120227
  2. BUSULFEX [Suspect]
     Active Substance: BUSULFAN
     Dosage: 8.0 MG MILLIGRAM(S), QID
     Route: 041
     Dates: start: 20120308, end: 20120309
  3. METHOTREXATE. [Concomitant]
     Active Substance: METHOTREXATE
     Indication: PROPHYLAXIS AGAINST GRAFT VERSUS HOST DISEASE
     Dosage: 2.8 MG, QD
     Route: 041
     Dates: start: 20120314, end: 20120314
  4. VENOGLOBULIN IH [Concomitant]
     Active Substance: HUMAN IMMUNOGLOBULIN G
     Indication: HYPOGAMMAGLOBULINAEMIA
     Dosage: 1000 MG, QD
     Route: 041
     Dates: start: 20120304, end: 20120307
  5. METHOTREXATE. [Concomitant]
     Active Substance: METHOTREXATE
     Dosage: 2.8 MG, QD
     Route: 041
     Dates: start: 20120316, end: 20120316
  6. ETOPOSIDE. [Concomitant]
     Active Substance: ETOPOSIDE
     Indication: CORD BLOOD TRANSPLANT THERAPY
     Dosage: 480 MG, QD
     Route: 041
     Dates: start: 20120309, end: 20120309
  7. ENDOXAN [Concomitant]
     Active Substance: CYCLOPHOSPHAMIDE
     Indication: CORD BLOOD TRANSPLANT THERAPY
     Dosage: 480 MG, QD
     Route: 041
     Dates: start: 20120310, end: 20120311
  8. ITRIZOLE [Concomitant]
     Active Substance: ITRACONAZOLE
     Indication: INFECTION PROPHYLAXIS
     Dosage: 30 MG, QD
     Route: 041
     Dates: start: 20120311
  9. RED BLOOD CELLS, CONCENTRATED [Concomitant]
     Active Substance: HUMAN RED BLOOD CELL
     Indication: PRODUCT USED FOR UNKNOWN INDICATION
     Dosage: 1 U BETWEEN 27-FEB-2012 AND 17-MAR-2012
     Route: 041
  10. PROGRAF [Concomitant]
     Active Substance: TACROLIMUS\TACROLIMUS ANHYDROUS
     Indication: IMMUNOSUPPRESSION
     Dosage: 0.12 MG, QD
     Route: 041
     Dates: start: 20120312
  11. PENTCILLIN [Concomitant]
     Active Substance: PIPERACILLIN SODIUM
     Indication: INFECTION PROPHYLAXIS
     Dosage: 400 MG, BID
     Route: 041
     Dates: start: 20120313, end: 2012
  12. BUSULFEX [Suspect]
     Active Substance: BUSULFAN
     Dosage: 7.5 MG, QID
     Route: 041
     Dates: start: 20120305, end: 20120308
  13. PLATELETS [Concomitant]
     Active Substance: HUMAN PLATELET, ALLOGENIC
     Indication: PRODUCT USED FOR UNKNOWN INDICATION
     Dosage: 20 U BETWEEN 27-FEB-2012 AND 17-MAR-2012
     Route: 041
  14. ETOPOSIDE. [Concomitant]
     Active Substance: ETOPOSIDE
     Indication: PRODUCT USED FOR UNKNOWN INDICATION
  15. MEROPEN [Concomitant]
     Active Substance: MEROPENEM
     Indication: PYREXIA
     Dosage: 300 MG, TID
     Route: 041
     Dates: start: 20120309, end: 20120312
  16. METHOTREXATE. [Concomitant]
     Active Substance: METHOTREXATE
     Dosage: 2.8 MG, QD
     Route: 041
     Dates: start: 20130319, end: 20130319

REACTIONS (5)
  - Platelet count decreased [Recovered/Resolved]
  - Hepatic failure [Recovering/Resolving]
  - Venoocclusive liver disease [Recovering/Resolving]
  - Pulmonary haemorrhage [Recovered/Resolved]
  - Ascites [Recovering/Resolving]

NARRATIVE: CASE EVENT DATE: 20120317
